FAERS Safety Report 7945189-2 (Version None)
Quarter: 2011Q4

REPORT INFORMATION
  Report Type: 
  Country: None (occurrence: None)
  Receive Date: 20111129
  Receipt Date: 20111118
  Transmission Date: 20120403
  Serious: Yes (Death, Other)
  Sender: FDA-Public Use
  Company Number: IT-CELGENEUS-083-21880-11081493

PATIENT
  Sex: Female
  Weight: 80 kg

DRUGS (11)
  1. PIPERACILLIN AND TAZOBACTAM [Concomitant]
  2. AMIODARONE HCL [Concomitant]
     Indication: CARDIAC DISORDER
     Dosage: 1/2 PP X 2
     Route: 065
     Dates: start: 20110730, end: 20110906
  3. FIDATO [Concomitant]
  4. METHYLPREDNISOLONE [Concomitant]
     Route: 065
     Dates: start: 20110802, end: 20110824
  5. MERREM [Concomitant]
  6. DIFLUCAN [Concomitant]
     Route: 065
     Dates: start: 20110824, end: 20110901
  7. FIDATO [Concomitant]
     Indication: INFECTION
     Route: 065
     Dates: start: 20110808, end: 20110820
  8. CYTARABINE [Suspect]
     Dosage: 40 MILLIGRAM
     Route: 058
  9. PIPERACILLIN AND TAZOBACTAM [Concomitant]
     Indication: INFECTION
     Dosage: 13.5 GRAM
     Route: 065
     Dates: start: 20110820, end: 20110824
  10. REVLIMID [Suspect]
     Dosage: 10 MILLIGRAM
     Route: 048
  11. MERREM [Concomitant]
     Indication: INFECTION
     Route: 065
     Dates: start: 20110824, end: 20110901

REACTIONS (2)
  - NO THERAPEUTIC RESPONSE [None]
  - ACUTE MYELOID LEUKAEMIA [None]
